FAERS Safety Report 5306418-7 (Version None)
Quarter: 2007Q2

REPORT INFORMATION
  Report Type: 
  Country: None (occurrence: None)
  Receive Date: 20070419
  Receipt Date: 20070413
  Transmission Date: 20071010
  Serious: Yes (Death)
  Sender: FDA-Public Use
  Company Number: 2007SP006648

PATIENT
  Sex: Female

DRUGS (3)
  1. TEMODAL [Suspect]
     Indication: GLIOBLASTOMA MULTIFORME
     Dosage: 75 MG/M2; QD; PO
     Route: 048
  2. FERON (INTERFERON BETA) [Suspect]
     Indication: GLIOBLASTOMA MULTIFORME
     Dosage: 3 IU; TIW; IV
     Route: 042
  3. STEROID [Concomitant]

REACTIONS (5)
  - ACUTE RESPIRATORY DISTRESS SYNDROME [None]
  - CYTOMEGALOVIRUS INFECTION [None]
  - INTERSTITIAL LUNG DISEASE [None]
  - LYMPHOCYTE COUNT DECREASED [None]
  - RESPIRATORY FAILURE [None]
